FAERS Safety Report 7196993-2 (Version None)
Quarter: 2010Q4

REPORT INFORMATION
  Report Type: 
  Country: None (occurrence: None)
  Receive Date: 20101224
  Receipt Date: 20101216
  Transmission Date: 20110411
  Serious: Yes (Other)
  Sender: FDA-Public Use
  Company Number: PL-PFIZER INC-2010173591

PATIENT
  Age: 72 Year
  Sex: Male

DRUGS (10)
  1. DOXAZOSIN MESYLATE [Suspect]
     Indication: BENIGN PROSTATIC HYPERPLASIA
     Dosage: 4 MG, 1X/DAY
  2. DOXAZOSIN MESYLATE [Suspect]
     Indication: HYPERTENSION
  3. METOPROLOL [Concomitant]
     Dosage: 100 MG, 1X/DAY
  4. RAMIPRIL [Concomitant]
     Dosage: 10 MG, 1X/DAY
  5. RAMIPRIL [Concomitant]
     Dosage: 2.5 MG, 1X/DAY
  6. SPIRONOL [Concomitant]
     Dosage: 25 MG, 1X/DAY
  7. FUROSEMID [Concomitant]
     Dosage: 40 MG, 1X/DAY
  8. FUROSEMID [Concomitant]
     Dosage: 20 MG, 1X/DAY
  9. ACETYLSALICYLIC ACID [Concomitant]
     Dosage: 75 MG, 1X/DAY
  10. SIMVASTATIN [Concomitant]
     Dosage: 40 MG, 1X/DAY

REACTIONS (6)
  - DYSPNOEA EXERTIONAL [None]
  - EXERCISE TOLERANCE DECREASED [None]
  - NOCTURIA [None]
  - OEDEMA PERIPHERAL [None]
  - ORTHOPNOEA [None]
  - WEIGHT INCREASED [None]
